FAERS Safety Report 7551086-7 (Version None)
Quarter: 2011Q2

REPORT INFORMATION
  Report Type: 
  Country: None (occurrence: None)
  Receive Date: 20110616
  Receipt Date: 20110610
  Transmission Date: 20111010
  Serious: Yes (Hospitalization)
  Sender: FDA-Public Use
  Company Number: CN-BRISTOL-MYERS SQUIBB COMPANY-15827587

PATIENT
  Age: 4 Decade
  Sex: Female

DRUGS (1)
  1. GLUCOPHAGE [Suspect]
     Indication: DIABETES MELLITUS
     Route: 048

REACTIONS (2)
  - JAUNDICE [None]
  - HAEMOLYTIC ANAEMIA [None]
